FAERS Safety Report 14908655 (Version 1)
Quarter: 2018Q2

REPORT INFORMATION
  Report Type: Spontaneous
  Country: US (occurrence: US)
  Receive Date: 20180517
  Receipt Date: 20180517
  Transmission Date: 20180711
  Serious: No
  Sender: FDA-Public Use
  Company Number: US-009507513-1804USA008842

PATIENT
  Age: 68 Year
  Sex: Male

DRUGS (4)
  1. KEYTRUDA [Suspect]
     Active Substance: PEMBROLIZUMAB
     Indication: METASTASES TO CENTRAL NERVOUS SYSTEM
  2. TALIMOGENE LAHERPAREPVEC [Suspect]
     Active Substance: TALIMOGENE LAHERPAREPVEC
     Indication: METASTASES TO CENTRAL NERVOUS SYSTEM
  3. KEYTRUDA [Suspect]
     Active Substance: PEMBROLIZUMAB
     Indication: METASTATIC MALIGNANT MELANOMA
     Dosage: UNK, EVERY 3 WEEKS
     Dates: start: 2016
  4. TALIMOGENE LAHERPAREPVEC [Suspect]
     Active Substance: TALIMOGENE LAHERPAREPVEC
     Indication: METASTATIC MALIGNANT MELANOMA
     Dosage: 4 ML, EVERY 2 WEEKS(STRENGTH: 10^6 PLAQUE FORMING UNITS (PFU)/ML)
     Route: 036
     Dates: start: 201603

REACTIONS (2)
  - Fatigue [Unknown]
  - Memory impairment [Unknown]
